FAERS Safety Report 14878641 (Version 1)
Quarter: 2018Q2

REPORT INFORMATION
  Report Type: Spontaneous
  Country: US (occurrence: US)
  Receive Date: 20180511
  Receipt Date: 20180511
  Transmission Date: 20180711
  Serious: No
  Sender: FDA-Public Use
  Company Number: US-PUMA BIOTECHNOLOGY, LTD.-2018US001201

PATIENT

DRUGS (1)
  1. NERLYNX [Suspect]
     Active Substance: NERATINIB
     Indication: PRODUCT USED FOR UNKNOWN INDICATION
     Dosage: UNK
     Dates: start: 20180131

REACTIONS (6)
  - Impaired driving ability [Unknown]
  - Off label use [Unknown]
  - Abdominal pain upper [Unknown]
  - Ocular hyperaemia [Unknown]
  - Somnolence [Unknown]
  - Nervousness [Unknown]
